FAERS Safety Report 6547243-9 (Version None)
Quarter: 2010Q1

REPORT INFORMATION
  Report Type: 
  Country: None (occurrence: None)
  Receive Date: 20100119
  Receipt Date: 20100104
  Transmission Date: 20100710
  Serious: Yes (Death, Hospitalization)
  Sender: FDA-Public Use
  Company Number: 2009AC000250

PATIENT
  Age: 71 Year
  Sex: Female

DRUGS (41)
  1. DIGOXIN [Suspect]
     Dosage: 0.125 MG; QD; PO
     Route: 048
     Dates: start: 20070601
  2. PROTONIX [Concomitant]
  3. COREG [Concomitant]
  4. PROCARDIA [Concomitant]
  5. ALBUTEROL SULFATE AUTOHALER [Concomitant]
  6. OXYGEN [Concomitant]
  7. TORADOL [Concomitant]
  8. ALTACE [Concomitant]
  9. CORDARONE [Concomitant]
  10. XOPENEX [Concomitant]
  11. LASIX [Concomitant]
  12. COREG [Concomitant]
  13. AMIODARONE [Concomitant]
  14. POTASSIUM CHLORIDE [Concomitant]
  15. NEURONTIN [Concomitant]
  16. PROTONIX [Concomitant]
  17. AMIODARONE [Concomitant]
  18. LOVENOX [Concomitant]
  19. ASPIRIN [Concomitant]
  20. COREG [Concomitant]
  21. PROCARDIA XL [Concomitant]
  22. LASIX [Concomitant]
  23. POTASSIUM [Concomitant]
  24. TPN [Concomitant]
  25. MORPHINE SULFATE [Concomitant]
  26. ATROPINE [Concomitant]
  27. LORAZEPAM [Concomitant]
  28. COMPAZINE [Concomitant]
  29. PHENOBARBITAL SRT [Concomitant]
  30. ACETAMINOPHEN [Concomitant]
  31. LIBRIUM [Concomitant]
  32. HALOPERIDOL [Concomitant]
  33. L-HYOSCAMINE SULFATE [Concomitant]
  34. PROCARDIA [Concomitant]
  35. MEGACE [Concomitant]
  36. LEVAQUIN [Concomitant]
  37. AMBIEN [Concomitant]
  38. LORTAB [Concomitant]
  39. SENNA [Concomitant]
  40. ALBUTEROL [Concomitant]
  41. VICODIN [Concomitant]

REACTIONS (37)
  - ABASIA [None]
  - ABDOMINAL PAIN [None]
  - ASTHENIA [None]
  - BALANCE DISORDER [None]
  - BLINDNESS UNILATERAL [None]
  - CACHEXIA [None]
  - CARDIAC FAILURE CONGESTIVE [None]
  - CARDIOACTIVE DRUG LEVEL INCREASED [None]
  - COLITIS [None]
  - COLITIS ISCHAEMIC [None]
  - CONDITION AGGRAVATED [None]
  - CONVULSION [None]
  - CORONARY ARTERY DISEASE [None]
  - CULTURE URINE POSITIVE [None]
  - DECREASED APPETITE [None]
  - DEHYDRATION [None]
  - DIARRHOEA [None]
  - DIZZINESS [None]
  - DYSPNOEA [None]
  - ECONOMIC PROBLEM [None]
  - FAMILY STRESS [None]
  - FATIGUE [None]
  - HEPATIC ENZYME ABNORMAL [None]
  - HYPERTENSION [None]
  - KLEBSIELLA INFECTION [None]
  - MALNUTRITION [None]
  - MULTIPLE INJURIES [None]
  - NAUSEA [None]
  - PAIN [None]
  - PERIPHERAL ARTERIAL OCCLUSIVE DISEASE [None]
  - PROTHROMBIN TIME PROLONGED [None]
  - RECTAL ABSCESS [None]
  - RECTAL HAEMORRHAGE [None]
  - SOCIAL PROBLEM [None]
  - THERAPEUTIC AGENT TOXICITY [None]
  - UNEVALUABLE EVENT [None]
  - URINARY TRACT INFECTION [None]
